FAERS Safety Report 13841705 (Version 1)
Quarter: 2017Q3

REPORT INFORMATION
  Report Type: Spontaneous
  Country: US (occurrence: US)
  Receive Date: 20170807
  Receipt Date: 20170807
  Transmission Date: 20171127
  Serious: No
  Sender: FDA-Public Use
  Company Number: US-AMGEN-USASP2016158041

PATIENT
  Age: 6 Year
  Sex: Male
  Weight: 24.3 kg

DRUGS (16)
  1. NPLATE [Suspect]
     Active Substance: ROMIPLOSTIM
     Dosage: 140 MUG (6 MUG/KG), UNK
     Route: 065
     Dates: start: 20160826
  2. NPLATE [Suspect]
     Active Substance: ROMIPLOSTIM
     Dosage: 250 MUG (10 MUG/KG), UNK
     Route: 065
     Dates: start: 20161025
  3. NPLATE [Suspect]
     Active Substance: ROMIPLOSTIM
     Dosage: 185 MUG (8 MUG/KG), UNK
     Route: 065
     Dates: start: 20160906
  4. NPLATE [Suspect]
     Active Substance: ROMIPLOSTIM
     Indication: IMMUNE THROMBOCYTOPENIC PURPURA
     Dosage: 10 MUG(PER KG), UNK
     Route: 065
     Dates: start: 20160812
  5. NPLATE [Suspect]
     Active Substance: ROMIPLOSTIM
     Dosage: 210 MUG (9 MUG/KG), UNK
     Route: 065
     Dates: start: 20160913
  6. NPLATE [Suspect]
     Active Substance: ROMIPLOSTIM
     Dosage: 165 MUG (7 MUG/KG), UNK
     Route: 065
     Dates: start: 20160830
  7. NPLATE [Suspect]
     Active Substance: ROMIPLOSTIM
     Dosage: 250 MUG (10 MUG/KG), UNK
     Route: 065
     Dates: start: 20161108
  8. NPLATE [Suspect]
     Active Substance: ROMIPLOSTIM
     Dosage: 25 MUG (1 MUG/KG), UNK
     Route: 065
     Dates: start: 20160812
  9. NPLATE [Suspect]
     Active Substance: ROMIPLOSTIM
     Dosage: 250 MUG (10 MUG/KG), UNK
     Route: 065
     Dates: start: 20161018
  10. NPLATE [Suspect]
     Active Substance: ROMIPLOSTIM
     Dosage: 115 MUG (5 MUG/KG), UNK
     Route: 065
     Dates: start: 20160819
  11. NPLATE [Suspect]
     Active Substance: ROMIPLOSTIM
     Dosage: 235 MUG (10 MUG/KG), UNK
     Route: 065
     Dates: start: 20160920
  12. ZYRTEC [Concomitant]
     Active Substance: CETIRIZINE HYDROCHLORIDE
     Indication: HYPERSENSITIVITY
     Dosage: 5 MG, QD
     Dates: start: 20161018
  13. NPLATE [Suspect]
     Active Substance: ROMIPLOSTIM
     Dosage: 235 MUG (10 MUG/KG), UNK
     Route: 065
     Dates: start: 20160927
  14. NPLATE [Suspect]
     Active Substance: ROMIPLOSTIM
     Dosage: 235 MUG (10 MUG/KG), UNK
     Route: 065
     Dates: start: 20161004
  15. NPLATE [Suspect]
     Active Substance: ROMIPLOSTIM
     Dosage: 250 MUG (10 MUG/KG), UNK
     Route: 065
     Dates: start: 20161101
  16. NPLATE [Suspect]
     Active Substance: ROMIPLOSTIM
     Dosage: 235 MUG (10 MUG/KG), UNK
     Route: 065
     Dates: start: 20161011

REACTIONS (2)
  - Off label use [Unknown]
  - Platelet count abnormal [Unknown]
